FAERS Safety Report 17235596 (Version 1)
Quarter: 2019Q4

REPORT INFORMATION
  Report Type: Spontaneous
  Country: US (occurrence: US)
  Receive Date: 20191211
  Receipt Date: 20191211
  Transmission Date: 20200122
  Serious: Yes (Death)
  Sender: FDA-Public Use
  Company Number: None

PATIENT
  Age: 59 Year
  Sex: Female

DRUGS (1)
  1. CAPECITABINE 500MG [Suspect]
     Active Substance: CAPECITABINE
     Indication: ILL-DEFINED DISORDER
     Dosage: SEE EVENT
     Route: 048
     Dates: start: 20191004

REACTIONS (1)
  - Death [None]

NARRATIVE: CASE EVENT DATE: 20191004
